FAERS Safety Report 15538796 (Version 1)
Quarter: 2018Q4

REPORT INFORMATION
  Report Type: Spontaneous
  Country: CA (occurrence: CA)
  Receive Date: 20181022
  Receipt Date: 20181022
  Transmission Date: 20190205
  Serious: Yes (Death)
  Sender: FDA-Public Use
  Company Number: CA-SA-2018SA289773

PATIENT
  Age: 75 Year
  Sex: Male

DRUGS (1)
  1. BCG FOR IMMUNOTHERAPY [Suspect]
     Active Substance: BACILLUS CALMETTE-GUERIN ANTIGEN, UNSPECIFIED SUBSTRAIN
     Indication: BLADDER CANCER
     Dosage: UNK
     Route: 043

REACTIONS (14)
  - Transplant failure [Fatal]
  - Sepsis [Fatal]
  - Weight decreased [Fatal]
  - Prerenal failure [Fatal]
  - Transitional cell carcinoma [Fatal]
  - Tubulointerstitial nephritis [Fatal]
  - Fatigue [Fatal]
  - Asthenia [Fatal]
  - Cystitis [Fatal]
  - Disseminated Bacillus Calmette-Guerin infection [Fatal]
  - Hydronephrosis [Fatal]
  - End stage renal disease [Fatal]
  - Pyonephrosis [Fatal]
  - Haematuria [Fatal]
